FAERS Safety Report 13813934 (Version 1)
Quarter: 2017Q3

REPORT INFORMATION
  Report Type: Spontaneous
  Country: US (occurrence: US)
  Receive Date: 20170731
  Receipt Date: 20170731
  Transmission Date: 20171127
  Serious: No
  Sender: FDA-Public Use
  Company Number: US-PFIZER INC-2017329277

PATIENT
  Age: 46 Year
  Sex: Female

DRUGS (1)
  1. IBRANCE [Suspect]
     Active Substance: PALBOCICLIB
     Indication: BREAST CANCER FEMALE
     Dosage: 1 DF, CYCLIC (AKE 1 CAPSULE BY MOUTH DAILY FOR 21 DAYS AND 7 DAYS OFF)
     Route: 048
     Dates: start: 201706

REACTIONS (5)
  - Rash [Unknown]
  - Rhinorrhoea [Unknown]
  - Nasal disorder [Unknown]
  - Full blood count decreased [Unknown]
  - Vaginal discharge [Unknown]
